FAERS Safety Report 17662526 (Version 1)
Quarter: 2020Q2

REPORT INFORMATION
  Report Type: Report from Study
  Country: US (occurrence: US)
  Receive Date: 20200413
  Receipt Date: 20200413
  Transmission Date: 20200713
  Serious: Yes (Hospitalization, Other)
  Sender: FDA-Public Use
  Company Number: US-BAYER-2020-057852

PATIENT
  Age: 38 Year

DRUGS (1)
  1. BETASERON [Suspect]
     Active Substance: INTERFERON BETA-1B
     Indication: MULTIPLE SCLEROSIS
     Dosage: 8 MIU, QOD
     Dates: start: 20180212

REACTIONS (6)
  - Pyrexia [Not Recovered/Not Resolved]
  - Generalised tonic-clonic seizure [None]
  - Expired product administered [None]
  - Dyspnoea [Not Recovered/Not Resolved]
  - Pneumonia [Not Recovered/Not Resolved]
  - Blood potassium decreased [None]

NARRATIVE: CASE EVENT DATE: 202002
